FAERS Safety Report 11944462 (Version 2)
Quarter: 2016Q1

REPORT INFORMATION
  Report Type: Spontaneous
  Country: US (occurrence: US)
  Receive Date: 20160125
  Receipt Date: 20160224
  Transmission Date: 20160526
  Serious: No
  Sender: FDA-Public Use
  Company Number: US-009507513-1601USA002868

PATIENT
  Sex: Female

DRUGS (1)
  1. PRINIVIL [Suspect]
     Active Substance: LISINOPRIL
     Dosage: UNK
     Route: 048

REACTIONS (1)
  - Cough [Recovered/Resolved]
